FAERS Safety Report 13162039 (Version 3)
Quarter: 2017Q1

REPORT INFORMATION
  Report Type: Spontaneous
  Country: US (occurrence: US)
  Receive Date: 20170130
  Receipt Date: 20170221
  Transmission Date: 20170428
  Serious: No
  Sender: FDA-Public Use
  Company Number: US-PFIZER INC-2016256825

PATIENT
  Age: 68 Year
  Sex: Female

DRUGS (42)
  1. ALLEGRA [Concomitant]
     Active Substance: FEXOFENADINE HYDROCHLORIDE
     Dosage: 180 MG, UNK
     Route: 048
  2. PROZAC [Concomitant]
     Active Substance: FLUOXETINE HYDROCHLORIDE
     Dosage: 10 MG, CYCLIC (DAILY FOR 7 DAYS THEN 2 CAPSULES BY MOUTH DAILY FROM THEN ON STOP SERTALINE)
     Route: 048
     Dates: start: 20160223
  3. LESCOL XL [Concomitant]
     Active Substance: FLUVASTATIN SODIUM
     Dosage: 80 MG, 1X/DAY (AT BEDTIME)
     Route: 048
     Dates: start: 20160318
  4. FLONASE [Concomitant]
     Active Substance: FLUTICASONE PROPIONATE
     Dosage: UNK, 1X/DAY (INSTILL 1 TO 2 SPRAYS INTO EACH NOSTRIL)
     Route: 045
     Dates: start: 20161125
  5. LESCOL XL [Concomitant]
     Active Substance: FLUVASTATIN SODIUM
     Dosage: 80 MG, 1X/DAY (AT BEDTIME)
     Route: 048
     Dates: start: 20161125
  6. DILAUDID [Concomitant]
     Active Substance: HYDROMORPHONE HYDROCHLORIDE
     Indication: PAIN
     Dosage: 4 MG, AS NEEDED (1 TAB EVERY 6 HOUR, MAX 2 TABS PER DAY)
     Route: 048
     Dates: start: 20160422
  7. MIRALAX [Concomitant]
     Active Substance: POLYETHYLENE GLYCOL 3350
     Dosage: 527 G, CYCLIC (1 CAPFUL IN 8 OUNCES WATER THREE TIMES DAILY X 1 DAY, THEN 2 TIMES DAILY FOR 1 DAY
     Dates: start: 20161125
  8. MINIPRESS [Concomitant]
     Active Substance: PRAZOSIN HYDROCHLORIDE
     Indication: NIGHTMARE
     Dosage: 2 MG, AS NEEDED (DAILY)
     Route: 048
     Dates: start: 20160406
  9. VITAMIN D3 [Concomitant]
     Active Substance: CHOLECALCIFEROL
     Dosage: 2000 IU, DAILY
     Route: 048
  10. COENZYME Q10 [Concomitant]
     Active Substance: UBIDECARENONE
     Dosage: 1 DF, UNK
     Route: 048
  11. PROZAC [Concomitant]
     Active Substance: FLUOXETINE HYDROCHLORIDE
     Dosage: 40 MG, DAILY
     Route: 048
     Dates: start: 20161125
  12. COZAAR [Concomitant]
     Active Substance: LOSARTAN POTASSIUM
     Dosage: 100 MG, 1X/DAY
     Route: 048
     Dates: start: 20161125
  13. LYRICA [Suspect]
     Active Substance: PREGABALIN
     Dosage: 150 MG, 2X/DAY
     Route: 048
     Dates: start: 20150908
  14. LYRICA [Suspect]
     Active Substance: PREGABALIN
     Dosage: 150 MG, 2X/DAY
     Route: 048
     Dates: start: 20170123
  15. NORVASC [Concomitant]
     Active Substance: AMLODIPINE BESYLATE
     Dosage: 10 MG, 1X/DAY
     Route: 048
     Dates: start: 20161125
  16. DILAUDID [Concomitant]
     Active Substance: HYDROMORPHONE HYDROCHLORIDE
     Dosage: 4 MG, AS NEEDED (1 TAB EVERY 6 HOUR, MAX 2 TABS PER DAY)
     Route: 048
     Dates: start: 20161223
  17. DESYREL [Concomitant]
     Active Substance: TRAZODONE HYDROCHLORIDE
     Indication: SLEEP DISORDER
     Dosage: 200 MG, AS NEEDED (NIGHTLY)
     Route: 048
     Dates: start: 20160408
  18. LYRICA [Suspect]
     Active Substance: PREGABALIN
     Dosage: 150 MG, 2X/DAY
     Route: 048
     Dates: start: 20161115
  19. ASPIRIN. [Concomitant]
     Active Substance: ASPIRIN
     Indication: CARDIAC DISORDER
     Dosage: 81 MG, DAILY
     Dates: start: 20141230
  20. VITAMIN B12 [Concomitant]
     Active Substance: CYANOCOBALAMIN
     Dosage: 5000 MG, DAILY
     Route: 048
  21. PREVACID [Concomitant]
     Active Substance: LANSOPRAZOLE
     Dosage: 30 MG, 2X/DAY
     Route: 048
     Dates: start: 20151112
  22. NITROSTAT [Concomitant]
     Active Substance: NITROGLYCERIN
     Dosage: 0.4 MG, AS NEEDED (EVERY 5 MINUTES FOR 3 DOSES)
     Route: 060
     Dates: start: 20161125
  23. FLEXERIL [Concomitant]
     Active Substance: CYCLOBENZAPRINE HYDROCHLORIDE
     Indication: MUSCLE SPASMS
     Dosage: 5 MG, AS NEEDED (AT BEDTIME)
  24. FLEXERIL [Concomitant]
     Active Substance: CYCLOBENZAPRINE HYDROCHLORIDE
     Indication: BACK PAIN
  25. LYRICA [Suspect]
     Active Substance: PREGABALIN
     Dosage: UNK UNK, 1X/DAY
     Route: 048
  26. TESSALON [Concomitant]
     Active Substance: BENZONATATE
     Indication: COUGH
     Dosage: 100 MG, AS NEEDED (THREE TIMES DAILY)
     Route: 048
     Dates: start: 20151224
  27. BIOTIN MAXIMUM STRENGTH [Concomitant]
     Dosage: 5 MG, 2X/DAY (2 TABS DAILY)
     Dates: start: 20160104
  28. FLONASE [Concomitant]
     Active Substance: FLUTICASONE PROPIONATE
     Indication: SINUS DISORDER
     Dosage: UNK, 1X/DAY (INSTILL 1 TO 2 SPRAYS INTO EACH NOSTRIL)
     Route: 045
     Dates: start: 20160104
  29. NORCO [Concomitant]
     Active Substance: ACETAMINOPHEN\HYDROCODONE BITARTRATE
     Indication: PAIN
     Dosage: UNK UNK, AS NEEDED  (MAX 2 TABS PER DAY)
     Route: 048
     Dates: start: 20160229
  30. PREVACID [Concomitant]
     Active Substance: LANSOPRAZOLE
     Dosage: 30 MG, 2X/DAY
     Route: 048
     Dates: start: 20161125
  31. DULERA [Concomitant]
     Active Substance: FORMOTEROL FUMARATE DIHYDRATE\MOMETASONE FUROATE
     Dosage: UNK UNK, 2X/DAY (INHALE 2 PUFFS INTO THE LUNGS)
     Route: 055
     Dates: start: 20161125
  32. MIRALAX [Concomitant]
     Active Substance: POLYETHYLENE GLYCOL 3350
     Dosage: 527 G, CYCLIC (1 CAPFUL IN 8 OUNCES WATER THREE TIMES DAILY X 1 DAY, THEN 2 TIMES DAILY FOR 1 DAY
     Dates: start: 20150413
  33. NORVASC [Concomitant]
     Active Substance: AMLODIPINE BESYLATE
     Dosage: 10 MG, 1X/DAY
     Route: 048
     Dates: start: 20160104
  34. FISH OIL [Concomitant]
     Active Substance: FISH OIL
     Dosage: 3000 MG, DAILY
     Route: 048
     Dates: start: 20100211
  35. VISTARI [Concomitant]
     Indication: PRURITUS
     Dosage: 25 MG, AS NEEDED (TAKE 1 TO 2 CAPSULES EVERY 6 TO 8 HOURS)
     Dates: start: 20160222
  36. VISTARI [Concomitant]
     Indication: ANXIETY
  37. VISTARI [Concomitant]
     Indication: INSOMNIA
  38. COZAAR [Concomitant]
     Active Substance: LOSARTAN POTASSIUM
     Dosage: 100 MG, 1X/DAY
     Route: 048
     Dates: start: 20151229
  39. DULERA [Concomitant]
     Active Substance: FORMOTEROL FUMARATE DIHYDRATE\MOMETASONE FUROATE
     Dosage: UNK UNK, 2X/DAY (INHALE 2 PUFFS INTO THE LUNGS)
     Route: 055
     Dates: start: 20151228
  40. NITROSTAT [Concomitant]
     Active Substance: NITROGLYCERIN
     Indication: CHEST PAIN
     Dosage: 0.4 MG, AS NEEDED (EVERY 5 MINUTES FOR 3 DOSES)
     Route: 060
     Dates: start: 20141230
  41. CETRAXAL [Concomitant]
     Active Substance: CIPROFLOXACIN
     Dosage: 0.25 ML, 2X/DAY (RIGHT EAR EVERY 12 HOURS FOR 7 DAYS ONLY)
     Dates: start: 20160304
  42. FERROUS SULFATE. [Concomitant]
     Active Substance: FERROUS SULFATE
     Dosage: 325 MG, DAILY (1 TABLET WITH BREAKFAST)
     Route: 048
     Dates: start: 20160303

REACTIONS (2)
  - Intentional product use issue [Unknown]
  - Pain [Unknown]
